FAERS Safety Report 5448185-2 (Version None)
Quarter: 2007Q3

REPORT INFORMATION
  Report Type: 
  Country: None (occurrence: None)
  Receive Date: 20070906
  Receipt Date: 20070821
  Transmission Date: 20080115
  Serious: Yes (Life-Threatening, Hospitalization)
  Sender: FDA-Public Use
  Company Number: 2007EU001682

PATIENT
  Age: 19 Year
  Sex: Male

DRUGS (9)
  1. VESICARE [Suspect]
     Indication: HYPERTONIC BLADDER
     Dosage: 5 MG, /D, ORAL
     Route: 048
     Dates: start: 20070531, end: 20070610
  2. OMEPRAZOLE [Concomitant]
  3. VALPROATE SODIUM [Concomitant]
  4. LAMOTRIGINE [Concomitant]
  5. PHENYTOIN SODIUM [Concomitant]
  6. MIDAZOLAM HCL [Concomitant]
  7. LAMICTAL [Concomitant]
  8. LANSOPRAZOLE [Concomitant]
  9. CLOBAZAM (CLOBAZAM) [Concomitant]

REACTIONS (3)
  - COORDINATION ABNORMAL [None]
  - MUSCULAR WEAKNESS [None]
  - STATUS EPILEPTICUS [None]
